FAERS Safety Report 4917995-X (Version None)
Quarter: 2006Q1

REPORT INFORMATION
  Report Type: 
  Country: None (occurrence: None)
  Receive Date: 20060221
  Receipt Date: 20051019
  Transmission Date: 20060701
  Serious: Yes (Disabling)
  Sender: FDA-Public Use
  Company Number: US-MERCK-0510USA08334

PATIENT
  Age: 37 Year
  Sex: Male
  Weight: 102 kg

DRUGS (2)
  1. VIOXX [Suspect]
     Indication: MUSCLE INJURY
     Route: 048
     Dates: start: 20030221, end: 20030601
  2. COUMADIN [Concomitant]
     Indication: CEREBROVASCULAR ACCIDENT PROPHYLAXIS
     Route: 065
     Dates: start: 20020301

REACTIONS (5)
  - ANXIETY [None]
  - BLOOD CHOLESTEROL INCREASED [None]
  - DEEP VEIN THROMBOSIS [None]
  - HYPERTENSION [None]
  - PAIN [None]
